FAERS Safety Report 4899597-7 (Version None)
Quarter: 2006Q1

REPORT INFORMATION
  Report Type: 
  Country: None (occurrence: None)
  Receive Date: 20060131
  Receipt Date: 20060119
  Transmission Date: 20060701
  Serious: Yes (Hospitalization)
  Sender: FDA-Public Use
  Company Number: FABR-11356

PATIENT
  Age: 23 Year
  Sex: Female

DRUGS (1)
  1. FABRAZYME [Suspect]
     Indication: FABRY'S DISEASE
     Dosage: 55 MG Q2WKS IV
     Route: 042
     Dates: start: 20050107

REACTIONS (7)
  - CENTRAL LINE INFECTION [None]
  - CHEST DISCOMFORT [None]
  - DISEASE RECURRENCE [None]
  - DYSPNOEA [None]
  - PYREXIA [None]
  - STAPHYLOCOCCAL INFECTION [None]
  - VOMITING [None]
